FAERS Safety Report 9394640 (Version 2)
Quarter: 2013Q4

REPORT INFORMATION
  Report Type: Spontaneous
  Country: US (occurrence: US)
  Receive Date: 20130711
  Receipt Date: 20131018
  Transmission Date: 20140711
  Serious: Yes (Hospitalization, Other)
  Sender: FDA-Public Use
  Company Number: US-BAYER-2013-082729

PATIENT
  Age: 31 Year
  Sex: Female
  Weight: 54.42 kg

DRUGS (4)
  1. MIRENA [Suspect]
     Indication: CONTRACEPTION
     Dosage: 20 MCG/24HR, CONT
     Route: 015
     Dates: start: 20101007, end: 20120525
  2. MIRENA [Suspect]
     Indication: CONTRACEPTION
     Dosage: UNK
     Dates: start: 20100928, end: 20100928
  3. PRENATAL VITAMINS [VIT C,B5,B12,D2,B3,B6,RETINOL PALMIT,B2,B1 MONO [Concomitant]
  4. ADVIL [Concomitant]

REACTIONS (13)
  - Intra-uterine contraceptive device removal [None]
  - Uterine perforation [None]
  - Device dislocation [None]
  - Genital haemorrhage [None]
  - Device dislocation [None]
  - Device difficult to use [None]
  - Device difficult to use [None]
  - Device difficult to use [None]
  - Injury [None]
  - Pain [None]
  - Emotional distress [None]
  - Scar [None]
  - Device issue [None]
